FAERS Safety Report 19513898 (Version 1)
Quarter: 2021Q3

REPORT INFORMATION
  Report Type: Spontaneous
  Country: US (occurrence: US)
  Receive Date: 20210709
  Receipt Date: 20210709
  Transmission Date: 20211014
  Serious: No
  Sender: FDA-Public Use
  Company Number: US-009507513-2106USA007976

PATIENT
  Age: 56 Year
  Sex: Male

DRUGS (1)
  1. PROVENTIL [Suspect]
     Active Substance: ALBUTEROL
     Dosage: 2 PUFFS EVERY 6 HOURS OR AS NEEDED
     Route: 055

REACTIONS (3)
  - Product dose omission issue [Unknown]
  - Inappropriate schedule of product administration [Unknown]
  - No adverse event [Unknown]

NARRATIVE: CASE EVENT DATE: 20210619
